FAERS Safety Report 12952614 (Version 2)
Quarter: 2016Q4

REPORT INFORMATION
  Report Type: Report from Study
  Country: JP (occurrence: JP)
  Receive Date: 20161117
  Receipt Date: 20161228
  Transmission Date: 20170207
  Serious: Yes (Other)
  Sender: FDA-Public Use
  Company Number: JP-PFIZER INC-2016529738

PATIENT
  Age: 44 Year
  Sex: Female
  Weight: 53 kg

DRUGS (31)
  1. LEUCOVORIN. [Concomitant]
     Active Substance: LEUCOVORIN
     Indication: ACUTE LYMPHOCYTIC LEUKAEMIA
     Dosage: UNK
     Route: 041
  2. DEXAMETHASONE SODIUM SUCCINATE [Suspect]
     Active Substance: DEXAMETHASONE SODIUM SUCCINATE
     Indication: ACUTE LYMPHOCYTIC LEUKAEMIA
     Dosage: UNK
     Route: 041
  3. DEXAMETHASONE SODIUM SUCCINATE [Suspect]
     Active Substance: DEXAMETHASONE SODIUM SUCCINATE
     Dosage: UNK
     Route: 041
  4. LITHIUM CARBONATE. [Concomitant]
     Active Substance: LITHIUM CARBONATE
     Indication: SUBSTANCE-INDUCED MOOD DISORDER
     Route: 048
  5. MAGMITT [Concomitant]
     Active Substance: MAGNESIUM OXIDE
     Indication: CONSTIPATION
     Route: 048
  6. CYCLOPHOSPHAMIDE HYDRATE [Suspect]
     Active Substance: CYCLOPHOSPHAMIDE
     Dosage: UNK
     Route: 041
  7. DIAMOX SEQUELS [Concomitant]
     Active Substance: ACETAZOLAMIDE
     Route: 048
  8. MEROPEN [Concomitant]
     Active Substance: MEROPENEM
     Indication: FEBRILE NEUTROPENIA
     Dosage: UNK
     Route: 041
  9. FML [Concomitant]
     Active Substance: FLUOROMETHOLONE
     Route: 047
  10. EMEND [Concomitant]
     Active Substance: APREPITANT
     Route: 048
  11. METHOTREXATE. [Suspect]
     Active Substance: METHOTREXATE
     Dosage: 1000 MG/M2, UNK
     Route: 041
     Dates: start: 20160927, end: 20160927
  12. CYLOCIDE [Suspect]
     Active Substance: CYTARABINE
     Dosage: 4000 MG/M2, UNK
     Route: 041
     Dates: start: 20160928, end: 20160929
  13. VINCRISTINE SULFATE. [Suspect]
     Active Substance: VINCRISTINE SULFATE
     Dosage: UNK
     Route: 041
  14. BAKTAR [Concomitant]
     Active Substance: SULFAMETHOXAZOLE\TRIMETHOPRIM
     Route: 048
  15. PROTECADIN [Concomitant]
     Active Substance: LAFUTIDINE
     Indication: CHRONIC GASTRITIS
     Route: 048
  16. AZUNOL [Concomitant]
     Active Substance: SODIUM GUALENATE
     Route: 048
  17. G LASTA [Suspect]
     Active Substance: PEGFILGRASTIM
     Indication: COLONY STIMULATING FACTOR PROPHYLAXIS
     Dosage: 3.6 MG, UNK
     Route: 058
     Dates: start: 20161001, end: 20161001
  18. CYLOCIDE [Suspect]
     Active Substance: CYTARABINE
     Indication: ACUTE LYMPHOCYTIC LEUKAEMIA
     Dosage: UNK
     Route: 041
  19. PROMAC [Concomitant]
     Active Substance: NITROFURANTOIN
     Route: 048
  20. TSUMURA GOSHAJINKIGAN EXTRACT GRANULES FOR ETHICAL USE [Concomitant]
     Indication: NEURALGIA
     Route: 048
  21. LYRICA [Concomitant]
     Active Substance: PREGABALIN
     Indication: NEURALGIA
     Route: 048
  22. LEUCOVORIN. [Concomitant]
     Active Substance: LEUCOVORIN
     Dosage: 200 MG, UNK
     Route: 041
     Dates: start: 20160928, end: 20160930
  23. ADRIACIN [Suspect]
     Active Substance: DOXORUBICIN HYDROCHLORIDE
     Dosage: UNK
     Route: 041
  24. RIVOTRIL [Concomitant]
     Active Substance: CLONAZEPAM
     Indication: NEURALGIA
     Dosage: UNK
     Route: 048
  25. CRAVIT [Concomitant]
     Active Substance: LEVOFLOXACIN
     Route: 048
  26. METHOTREXATE. [Suspect]
     Active Substance: METHOTREXATE
     Indication: ACUTE LYMPHOCYTIC LEUKAEMIA
     Dosage: UNK
     Route: 041
  27. ADRIACIN [Suspect]
     Active Substance: DOXORUBICIN HYDROCHLORIDE
     Indication: ACUTE LYMPHOCYTIC LEUKAEMIA
     Dosage: UNK
     Route: 041
  28. CYCLOPHOSPHAMIDE HYDRATE [Suspect]
     Active Substance: CYCLOPHOSPHAMIDE
     Indication: ACUTE LYMPHOCYTIC LEUKAEMIA
     Dosage: UNK
     Route: 041
  29. VINCRISTINE SULFATE. [Suspect]
     Active Substance: VINCRISTINE SULFATE
     Indication: ACUTE LYMPHOCYTIC LEUKAEMIA
     Dosage: UNK
     Route: 041
  30. FLUCONAZOLE. [Concomitant]
     Active Substance: FLUCONAZOLE
     Route: 048
  31. FEBURIC [Concomitant]
     Active Substance: FEBUXOSTAT
     Indication: HYPERURICAEMIA
     Route: 048

REACTIONS (5)
  - Bone marrow failure [Unknown]
  - Anaemia [Recovered/Resolved]
  - Febrile neutropenia [Recovered/Resolved]
  - Thrombocytopenia [Recovered/Resolved]
  - Febrile neutropenia [Unknown]

NARRATIVE: CASE EVENT DATE: 20161005
